FAERS Safety Report 7222631-6 (Version None)
Quarter: 2011Q1

REPORT INFORMATION
  Report Type: 
  Country: None (occurrence: None)
  Receive Date: 20110106
  Receipt Date: 20110106
  Transmission Date: 20110831
  Serious: Yes (Hospitalization)
  Sender: FDA-Public Use
  Company Number: None

PATIENT
  Age: 47 Year
  Sex: Male
  Weight: 75.7507 kg

DRUGS (2)
  1. PAZOPANIB 200MG [Suspect]
     Dosage: 800MG DAILY PO
     Route: 048
  2. SUNITINIB 12.5MG [Suspect]
     Indication: RENAL CELL CARCINOMA
     Dosage: 25MG, 37.5MG ALTERNATING PO
     Route: 048

REACTIONS (3)
  - RENAL FAILURE ACUTE [None]
  - PLEURAL EFFUSION [None]
  - NEPHROTIC SYNDROME [None]
